FAERS Safety Report 17051521 (Version 3)
Quarter: 2019Q4

REPORT INFORMATION
  Report Type: Report from Study
  Country: US (occurrence: US)
  Receive Date: 20191120
  Receipt Date: 20191231
  Transmission Date: 20200122
  Serious: No
  Sender: FDA-Public Use
  Company Number: US-IPSEN BIOPHARMACEUTICALS, INC.-2019-21433

PATIENT
  Sex: Male
  Weight: 69 kg

DRUGS (1)
  1. DYSPORT [Suspect]
     Active Substance: ABOBOTULINUMTOXINA
     Indication: MUSCLE SPASTICITY
     Dosage: 900 UNITS (100-200 UNITS PER INJECTION SITE)?RECONSTITUTED WITH 2 ML NORMAL SALINE
     Route: 030
     Dates: start: 20190430, end: 20190430

REACTIONS (1)
  - Therapeutic response shortened [Unknown]
